FAERS Safety Report 4996451-7 (Version None)
Quarter: 2006Q2

REPORT INFORMATION
  Report Type: 
  Country: None (occurrence: None)
  Receive Date: 20060509
  Receipt Date: 20060410
  Transmission Date: 20061013
  Serious: Yes (Other)
  Sender: FDA-Public Use
  Company Number: PHBS2006JP05526

PATIENT
  Age: 68 Year
  Sex: Male

DRUGS (7)
  1. NEORAL [Suspect]
     Indication: APLASTIC ANAEMIA
     Dosage: 300 MG/D
     Route: 048
     Dates: start: 20060404, end: 20060410
  2. PREDNISOLONE [Concomitant]
     Indication: APLASTIC ANAEMIA
     Route: 048
  3. NEUPOGEN [Concomitant]
     Route: 042
  4. TWINPAL [Concomitant]
     Route: 041
  5. SANDOSTATIN [Concomitant]
  6. CEFAMEZIN [Concomitant]
     Route: 042
  7. PENTCILLIN [Concomitant]
     Route: 042

REACTIONS (8)
  - BLOOD BILIRUBIN INCREASED [None]
  - BLOOD CREATININE INCREASED [None]
  - CHOLESTASIS [None]
  - DEHYDRATION [None]
  - DRUG INEFFECTIVE [None]
  - DRUG LEVEL BELOW THERAPEUTIC [None]
  - GAMMA-GLUTAMYLTRANSFERASE INCREASED [None]
  - PLATELET COUNT DECREASED [None]
